FAERS Safety Report 6221896-7 (Version None)
Quarter: 2009Q2

REPORT INFORMATION
  Report Type: 
  Country: None (occurrence: None)
  Receive Date: 20090608
  Receipt Date: 20090608
  Transmission Date: 20091009
  Serious: No
  Sender: FDA-Public Use
  Company Number: None

PATIENT
  Age: 67 Year
  Sex: Female
  Weight: 49.8957 kg

DRUGS (1)
  1. SULFAMETHOXAZOLE AND TRIMETHOPRIM [Suspect]
     Dosage: 8-2-2007 1 2X DAILY MOUTH
     Route: 048
     Dates: start: 20070803

REACTIONS (4)
  - ABDOMINAL PAIN [None]
  - BLADDER SPASM [None]
  - DRUG THERAPY CHANGED [None]
  - DYSPNOEA [None]
